FAERS Safety Report 5380755-2 (Version None)
Quarter: 2007Q3

REPORT INFORMATION
  Report Type: 
  Country: None (occurrence: None)
  Receive Date: 20070706
  Receipt Date: 20070702
  Transmission Date: 20080115
  Serious: Yes (Other)
  Sender: FDA-Public Use
  Company Number: A0661295A

PATIENT
  Age: 60 Year
  Sex: Male

DRUGS (13)
  1. COREG [Suspect]
     Dosage: 6.25MG TWICE PER DAY
     Route: 048
     Dates: start: 20010101
  2. COREG CR [Suspect]
     Route: 048
     Dates: start: 20070501
  3. ASPIRIN [Concomitant]
  4. DOXYCYCLINE [Concomitant]
  5. COZAAR [Concomitant]
  6. COUMADIN [Concomitant]
  7. METFORMIN HCL [Concomitant]
  8. SODIUM BICARBONATE [Concomitant]
  9. UNKNOWN MEDICATION [Concomitant]
  10. STOOL SOFTENER [Concomitant]
  11. GABAPENTIN [Concomitant]
  12. INSULIN [Concomitant]
  13. NEURONTIN [Concomitant]

REACTIONS (1)
  - ATRIAL FIBRILLATION [None]
